FAERS Safety Report 6937740-6 (Version None)
Quarter: 2010Q3

REPORT INFORMATION
  Report Type: 
  Country: None (occurrence: None)
  Receive Date: 20100820
  Receipt Date: 20100820
  Transmission Date: 20110219
  Serious: No
  Sender: FDA-Public Use
  Company Number: None

PATIENT
  Sex: Male
  Weight: 94.8018 kg

DRUGS (1)
  1. METOCLOPRAMIDE [Suspect]
     Indication: GASTROOESOPHAGEAL REFLUX DISEASE
     Dosage: 4 TIMES DAILY
     Dates: start: 20091228, end: 20100701

REACTIONS (4)
  - AMNESIA [None]
  - BALANCE DISORDER [None]
  - CONVULSION [None]
  - DYSKINESIA [None]
